FAERS Safety Report 10778701 (Version 3)
Quarter: 2015Q3

REPORT INFORMATION
  Report Type: Spontaneous
  Country: JP (occurrence: JP)
  Receive Date: 20150210
  Receipt Date: 20150914
  Transmission Date: 20151125
  Serious: Yes (Hospitalization)
  Sender: FDA-Public Use
  Company Number: JP-ROCHE-1535650

PATIENT
  Age: 6 Year
  Sex: Female
  Weight: 22 kg

DRUGS (7)
  1. PRANLUKAST [Concomitant]
     Active Substance: PRANLUKAST
     Route: 065
  2. FLUTICASONE PROPIONATE/SALMETEROL XINAFOATE [Concomitant]
     Active Substance: FLUTICASONE PROPIONATE\SALMETEROL XINAFOATE
     Route: 065
  3. MUCODYNE [Concomitant]
     Active Substance: CARBOCYSTEINE
     Route: 048
  4. XOLAIR [Suspect]
     Active Substance: OMALIZUMAB
     Indication: ASTHMA
     Route: 058
     Dates: start: 20141008
  5. ONON [Concomitant]
     Active Substance: PRANLUKAST
     Route: 048
  6. ADOAIR [Concomitant]
     Active Substance: FLUTICASONE PROPIONATE\SALMETEROL XINAFOATE
  7. MUCOSAL (JAPAN) [Concomitant]
     Route: 048

REACTIONS (3)
  - Nasopharyngitis [Recovered/Resolved]
  - Weight increased [Unknown]
  - Asthma [Recovered/Resolved]

NARRATIVE: CASE EVENT DATE: 20150126
